FAERS Safety Report 10270907 (Version 2)
Quarter: 2014Q3

REPORT INFORMATION
  Report Type: Spontaneous
  Country: US (occurrence: US)
  Receive Date: 20140701
  Receipt Date: 20140723
  Transmission Date: 20150326
  Serious: Yes (Other)
  Sender: FDA-Public Use
  Company Number: US-GLAXOSMITHKLINE-A1078792A

PATIENT
  Age: 69 Year
  Sex: Female

DRUGS (19)
  1. VITAMIN D2 [Concomitant]
     Active Substance: ERGOCALCIFEROL
  2. ATORVASTATIN [Concomitant]
     Active Substance: ATORVASTATIN
  3. HUMALOG [Concomitant]
     Active Substance: INSULIN LISPRO
  4. MAGNESIUM [Concomitant]
     Active Substance: MAGNESIUM
  5. DIFLUCAN [Concomitant]
     Active Substance: FLUCONAZOLE
  6. LANTUS [Concomitant]
     Active Substance: INSULIN GLARGINE
  7. MIRALAX [Concomitant]
     Active Substance: POLYETHYLENE GLYCOL 3350
  8. METHIMAZOLE. [Concomitant]
     Active Substance: METHIMAZOLE
  9. TIMOLOL EYE DROPS [Concomitant]
  10. ALBUTEROL SULFATE NEBULIZER [Concomitant]
  11. OXYGEN. [Concomitant]
     Active Substance: OXYGEN
  12. DILTIAZEM [Concomitant]
     Active Substance: DILTIAZEM
  13. BABY ASPIRIN [Concomitant]
     Active Substance: ASPIRIN
  14. SINGULAIR [Concomitant]
     Active Substance: MONTELUKAST SODIUM
  15. ADVAIR HFA [Suspect]
     Active Substance: FLUTICASONE PROPIONATE\SALMETEROL XINAFOATE
     Indication: ASTHMA
     Dosage: 1PUFF TWICE PER DAY
     Route: 055
  16. GUAIFENESIN. [Concomitant]
     Active Substance: GUAIFENESIN
  17. VITAMIN B12 INJECTION [Concomitant]
  18. OXYBUTYNIN CHLORIDE. [Concomitant]
     Active Substance: OXYBUTYNIN CHLORIDE
  19. LASIX [Concomitant]
     Active Substance: FUROSEMIDE

REACTIONS (3)
  - Sinusitis [Unknown]
  - Lung disorder [Unknown]
  - Deafness [Not Recovered/Not Resolved]

NARRATIVE: CASE EVENT DATE: 2004
